FAERS Safety Report 10191897 (Version 1)
Quarter: 2014Q2

REPORT INFORMATION
  Report Type: Spontaneous
  Country: US (occurrence: None)
  Receive Date: 20140522
  Receipt Date: 20140522
  Transmission Date: 20141212
  Serious: Yes (Other)
  Sender: FDA-Public Use
  Company Number: None

PATIENT
  Age: 60 Year
  Sex: Female

DRUGS (1)
  1. LEVOCETIRIZINE [Suspect]
     Indication: MULTIPLE ALLERGIES
     Dosage: QHS/ BEDTIME
     Route: 048
     Dates: start: 20140103, end: 20140130

REACTIONS (3)
  - Product quality issue [None]
  - Sinusitis [None]
  - Product substitution issue [None]
